FAERS Safety Report 5524309-3 (Version None)
Quarter: 2007Q4

REPORT INFORMATION
  Report Type: 
  Country: None (occurrence: None)
  Receive Date: 20071121
  Receipt Date: 20071113
  Transmission Date: 20080405
  Serious: Yes (Other)
  Sender: FDA-Public Use
  Company Number: US-PFIZER INC-2007095547

PATIENT
  Age: 7 Year
  Sex: Male
  Weight: 22.7 kg

DRUGS (4)
  1. FLAGYL [Suspect]
     Indication: GIARDIASIS
  2. ROCEPHIN [Suspect]
     Indication: TYPHOID FEVER
     Route: 042
     Dates: start: 20071009, end: 20071016
  3. BACTRIM [Suspect]
     Indication: DRUG USE FOR UNKNOWN INDICATION
     Dosage: TEXT:2 TSP
     Route: 048
  4. MOTRIN [Concomitant]

REACTIONS (1)
  - PLATELET COUNT INCREASED [None]
